FAERS Safety Report 13863843 (Version 1)
Quarter: 2017Q3

REPORT INFORMATION
  Report Type: Spontaneous
  Country: US (occurrence: US)
  Receive Date: 20170814
  Receipt Date: 20170814
  Transmission Date: 20171127
  Serious: Yes (Death, Hospitalization)
  Sender: FDA-Public Use
  Company Number: US-B.I. PHARMACEUTICALS,INC./RIDGEFIELD-2017-BI-044987

PATIENT
  Sex: Male

DRUGS (1)
  1. PRADAXA [Suspect]
     Active Substance: DABIGATRAN ETEXILATE MESYLATE
     Indication: ATRIAL FIBRILLATION
     Route: 065

REACTIONS (7)
  - Large intestine polyp [Fatal]
  - Respiratory failure [Fatal]
  - Cardio-respiratory arrest [Fatal]
  - Haemorrhagic anaemia [Unknown]
  - Cardiac failure [Fatal]
  - Upper gastrointestinal haemorrhage [Fatal]
  - Acute kidney injury [Fatal]
